FAERS Safety Report 16527348 (Version 1)
Quarter: 2019Q3

REPORT INFORMATION
  Report Type: Spontaneous
  Country: TR (occurrence: TR)
  Receive Date: 20190704
  Receipt Date: 20190704
  Transmission Date: 20191004
  Serious: Yes (Hospitalization, Other)
  Sender: FDA-Public Use
  Company Number: TR-009507513-1906TUR010571

PATIENT
  Age: 40 Year
  Sex: Male

DRUGS (2)
  1. KATARIN FORTE [Suspect]
     Active Substance: ACETAMINOPHEN\CHLORPHENIRAMINE MALEATE\OXOLAMINE CITRATE\PSEUDOEPHEDRINE HCL
     Dosage: 1 DOSAGE FORM
     Route: 048
     Dates: start: 20181112
  2. COSAAR [Suspect]
     Active Substance: LOSARTAN POTASSIUM
     Indication: HYPERTENSION
     Dosage: FILM TABLET, 1 DOSAGE FORM
     Route: 048
     Dates: start: 20181112

REACTIONS (2)
  - Cerebral haemorrhage [Unknown]
  - Hemiplegia [Recovered/Resolved]

NARRATIVE: CASE EVENT DATE: 20181112
